FAERS Safety Report 17201320 (Version 2)
Quarter: 2020Q1

REPORT INFORMATION
  Report Type: Spontaneous
  Country: IT (occurrence: IT)
  Receive Date: 20191226
  Receipt Date: 20200114
  Transmission Date: 20200409
  Serious: Yes (Other)
  Sender: FDA-Public Use
  Company Number: IT-SA-2019SA356913

PATIENT
  Age: 66 Year
  Sex: Female

DRUGS (1)
  1. PRALUENT [Suspect]
     Active Substance: ALIROCUMAB
     Indication: HYPERCHOLESTEROLAEMIA
     Dosage: UNK UNK, Q15D
     Dates: start: 20191206, end: 201912

REACTIONS (12)
  - Gait disturbance [Unknown]
  - Fatigue [Unknown]
  - Influenza like illness [Unknown]
  - Epistaxis [Unknown]
  - Condition aggravated [Unknown]
  - Pharyngeal haemorrhage [Unknown]
  - Dyspnoea [Unknown]
  - Headache [Unknown]
  - Weight decreased [Unknown]
  - Dysphagia [Unknown]
  - Pain in extremity [Unknown]
  - Drug hypersensitivity [Unknown]
